FAERS Safety Report 25480918 (Version 1)
Quarter: 2025Q2

REPORT INFORMATION
  Report Type: Spontaneous
  Country: CN (occurrence: CN)
  Receive Date: 20250625
  Receipt Date: 20250625
  Transmission Date: 20250717
  Serious: Yes (Death, Other)
  Sender: ASTELLAS
  Company Number: CN-ASTELLAS-2025-AER-034168

PATIENT
  Age: 73 Year
  Sex: Female
  Weight: 50 kg

DRUGS (2)
  1. PADCEV [Suspect]
     Active Substance: ENFORTUMAB VEDOTIN-EJFV
     Indication: Transitional cell carcinoma metastatic
     Route: 042
     Dates: start: 20250619
  2. Gemcitabine and Cisplatin [Concomitant]
     Indication: Transitional cell carcinoma metastatic
     Route: 065
     Dates: start: 20250613

REACTIONS (8)
  - Gastrointestinal haemorrhage [Fatal]
  - Shock [Fatal]
  - Platelet count decreased [Fatal]
  - White blood cell count decreased [Fatal]
  - Red blood cell count decreased [Fatal]
  - Haemoptysis [Fatal]
  - Haematemesis [Fatal]
  - Haemoglobin decreased [Unknown]

NARRATIVE: CASE EVENT DATE: 20250601
